FAERS Safety Report 16613663 (Version 1)
Quarter: 2019Q3

REPORT INFORMATION
  Report Type: Spontaneous
  Country: US (occurrence: US)
  Receive Date: 20190722
  Receipt Date: 20190722
  Transmission Date: 20191004
  Serious: Yes (Other)
  Sender: FDA-Public Use
  Company Number: None

PATIENT
  Sex: Female

DRUGS (2)
  1. PROLIA [Suspect]
     Active Substance: DENOSUMAB
     Indication: BONE DENSITY ABNORMAL
     Dosage: 1 SHOT EVERY 6 MO
     Dates: start: 20170601, end: 20190601
  2. PROLIA [Suspect]
     Active Substance: DENOSUMAB
     Dates: start: 20170601, end: 20190601

REACTIONS (2)
  - Therapy cessation [None]
  - Back pain [None]
